FAERS Safety Report 9432507 (Version 5)
Quarter: 2014Q2

REPORT INFORMATION
  Report Type: Report from Study
  Country: US (occurrence: US)
  Receive Date: 20130731
  Receipt Date: 20140605
  Transmission Date: 20141212
  Serious: Yes (Hospitalization, Other)
  Sender: FDA-Public Use
  Company Number: US-ROCHE-1254611

PATIENT
  Age: 66 Year
  Sex: Female

DRUGS (7)
  1. ZELBORAF [Suspect]
     Indication: METASTATIC MALIGNANT MELANOMA
     Route: 048
     Dates: start: 20130710
  2. ZELBORAF [Suspect]
     Route: 048
     Dates: start: 20130712, end: 20130714
  3. ZELBORAF [Suspect]
     Route: 048
  4. LEVOTHYROXINE [Concomitant]
     Indication: HYPOTHYROIDISM
     Route: 048
  5. TRAMADOL [Concomitant]
     Indication: BACK PAIN
     Route: 048
     Dates: start: 20130720
  6. BENADRYL (CANADA) [Concomitant]
  7. ASPIRIN [Concomitant]
     Indication: ATRIAL FIBRILLATION
     Route: 048

REACTIONS (13)
  - Diverticular perforation [Recovered/Resolved]
  - Pain [Recovered/Resolved]
  - Spinal compression fracture [Not Recovered/Not Resolved]
  - Squamous cell carcinoma of skin [Not Recovered/Not Resolved]
  - Rash erythematous [Recovered/Resolved]
  - Rash pruritic [Recovered/Resolved]
  - Rash [Not Recovered/Not Resolved]
  - Fall [Unknown]
  - Skin papilloma [Unknown]
  - Dysphagia [Unknown]
  - Rash [Not Recovered/Not Resolved]
  - Rash generalised [Unknown]
  - Diverticulitis [Unknown]
